FAERS Safety Report 25047281 (Version 1)
Quarter: 2025Q1

REPORT INFORMATION
  Report Type: Report from Study
  Country: BR (occurrence: BR)
  Receive Date: 20250306
  Receipt Date: 20250306
  Transmission Date: 20250408
  Serious: Yes (Other)
  Sender: EMD SERONO INC
  Company Number: BR-Merck Healthcare KGaA-2025010342

PATIENT
  Age: 58 Year
  Sex: Female

DRUGS (1)
  1. MAVENCLAD [Suspect]
     Active Substance: CLADRIBINE
     Indication: Multiple sclerosis
     Dates: start: 20240909

REACTIONS (7)
  - Carotid artery disease [Not Recovered/Not Resolved]
  - Anaemia [Not Recovered/Not Resolved]
  - Cardiac valve disease [Not Recovered/Not Resolved]
  - Tendon disorder [Not Recovered/Not Resolved]
  - Bursitis [Not Recovered/Not Resolved]
  - Blood triglycerides decreased [Not Recovered/Not Resolved]
  - Blood cholesterol decreased [Not Recovered/Not Resolved]

NARRATIVE: CASE EVENT DATE: 20250221
